FAERS Safety Report 8543131-7 (Version None)
Quarter: 2012Q3

REPORT INFORMATION
  Report Type: 
  Country: None (occurrence: None)
  Receive Date: 20120727
  Receipt Date: 20120223
  Transmission Date: 20120928
  Serious: No
  Sender: FDA-Public Use
  Company Number: US-MYLANLABS-2012S1004055

PATIENT
  Age: 69 Year
  Sex: Female

DRUGS (1)
  1. LEVOTHYROXINE SODIUM [Suspect]
     Indication: AUTOIMMUNE THYROIDITIS
     Dosage: 1 TABLET EVERY MORNING
     Route: 048
     Dates: start: 20110801, end: 20120220

REACTIONS (5)
  - HEART RATE INCREASED [None]
  - PARAESTHESIA [None]
  - ERYTHEMA [None]
  - HYPOAESTHESIA ORAL [None]
  - CHROMATURIA [None]
